FAERS Safety Report 15675557 (Version 2)
Quarter: 2018Q4

REPORT INFORMATION
  Report Type: Spontaneous
  Country: US (occurrence: US)
  Receive Date: 20181130
  Receipt Date: 20181130
  Transmission Date: 20190205
  Serious: Yes (Other)
  Sender: FDA-Public Use
  Company Number: US-BAYER-2018-218982

PATIENT
  Age: 67 Year
  Sex: Female

DRUGS (2)
  1. ALIQOPA [Suspect]
     Active Substance: COPANLISIB
     Indication: B-CELL LYMPHOMA
     Dosage: 45 MG
     Route: 042
  2. ALIQOPA [Suspect]
     Active Substance: COPANLISIB
     Indication: B-CELL LYMPHOMA
     Dosage: 60 MG
     Route: 042
     Dates: start: 20180712

REACTIONS (8)
  - Pneumonia [None]
  - Sinusitis [None]
  - Pharyngitis streptococcal [None]
  - Oropharyngeal pain [None]
  - Paraesthesia [Not Recovered/Not Resolved]
  - Hypertension [None]
  - Ear discomfort [None]
  - Blood glucose increased [Not Recovered/Not Resolved]

NARRATIVE: CASE EVENT DATE: 20180712
